FAERS Safety Report 5772297-7 (Version None)
Quarter: 2008Q2

REPORT INFORMATION
  Report Type: 
  Country: None (occurrence: None)
  Receive Date: 20080613
  Receipt Date: 20080609
  Transmission Date: 20081010
  Serious: Yes (Hospitalization, Other)
  Sender: FDA-Public Use
  Company Number: PHEH2007US10447

PATIENT
  Sex: Female
  Weight: 72.562 kg

DRUGS (15)
  1. ESTRADERM [Suspect]
     Indication: MENOPAUSAL SYMPTOMS
     Dosage: 0.1MG-0.5MG
     Route: 062
     Dates: start: 19910201, end: 19940901
  2. PREMARIN [Suspect]
     Indication: MENOPAUSAL SYMPTOMS
     Route: 048
     Dates: start: 19900501, end: 19970301
  3. ESTRATAB [Suspect]
     Indication: MENOPAUSAL SYMPTOMS
     Dosage: 0.625 MG, UNK
     Dates: start: 19950301, end: 19950801
  4. ESTRACE [Suspect]
     Indication: MENOPAUSAL SYMPTOMS
     Dosage: 1 MG, UNK
     Dates: start: 19950901, end: 19960301
  5. ESTRACE [Suspect]
     Dates: start: 19980201, end: 19980301
  6. ESTRATEST [Suspect]
     Indication: MENOPAUSAL SYMPTOMS
     Dates: start: 19960401, end: 19960701
  7. OGEN [Suspect]
     Indication: MENOPAUSAL SYMPTOMS
     Dates: start: 19971001, end: 19980101
  8. PROVERA [Suspect]
     Indication: MENOPAUSAL SYMPTOMS
     Dosage: 5/2.5MG
     Dates: start: 19900501, end: 19990101
  9. CYCRIN [Suspect]
     Indication: MENOPAUSAL SYMPTOMS
     Dates: start: 19971001, end: 19980201
  10. CYCRIN [Suspect]
     Dates: start: 19980601, end: 19981001
  11. PREMPRO [Suspect]
     Indication: MENOPAUSAL SYMPTOMS
     Dates: start: 19960401, end: 19980101
  12. ESTRADIOL [Suspect]
     Indication: MENOPAUSAL SYMPTOMS
     Dosage: UNK
     Dates: start: 19980601, end: 19981201
  13. HUMALOG [Concomitant]
     Indication: DIABETES MELLITUS
     Dosage: 20U AM, 12U PM
     Route: 058
     Dates: start: 19850101
  14. HUMULIN R [Concomitant]
     Dosage: 20U AM, 12U PM
     Route: 058
     Dates: start: 19850101
  15. HUMULIN R [Concomitant]
     Indication: DIABETES MELLITUS

REACTIONS (45)
  - BIOPSY [None]
  - BIOPSY BREAST ABNORMAL [None]
  - BIOPSY ENDOMETRIUM [None]
  - BLOOD CHOLESTEROL INCREASED [None]
  - BREAST CANCER [None]
  - CARDIAC TAMPONADE [None]
  - CHEST WALL OPERATION [None]
  - COLON POLYPECTOMY [None]
  - COLONIC POLYP [None]
  - COLONOSCOPY [None]
  - COUGH [None]
  - DIABETIC RETINAL OEDEMA [None]
  - DIABETIC RETINOPATHY [None]
  - DYSPNOEA [None]
  - EPIGLOTTITIS [None]
  - EYE PAIN [None]
  - FALL [None]
  - FEMUR FRACTURE [None]
  - FIBROCYSTIC BREAST DISEASE [None]
  - HEART VALVE INCOMPETENCE [None]
  - HILAR LYMPHADENOPATHY [None]
  - HIP FRACTURE [None]
  - HYPERDYNAMIC PRECORDIUM [None]
  - HYPERTENSION [None]
  - HYPOTHYROIDISM [None]
  - HYSTEROSCOPY [None]
  - LIMB INJURY [None]
  - LUNG INFILTRATION [None]
  - LYMPHADENECTOMY [None]
  - MALIGNANT BREAST LUMP REMOVAL [None]
  - MAMMOGRAM ABNORMAL [None]
  - MULTIPLE FRACTURES [None]
  - OPEN REDUCTION OF FRACTURE [None]
  - OSTEOPENIA [None]
  - PERICARDIAL EFFUSION [None]
  - PERICARDIAL EXCISION [None]
  - PERICARDITIS [None]
  - RADIOTHERAPY [None]
  - RECTAL HAEMORRHAGE [None]
  - SMEAR CERVIX ABNORMAL [None]
  - TACHYCARDIA [None]
  - UTERINE DILATION AND CURETTAGE [None]
  - VAGINAL HAEMORRHAGE [None]
  - VISION BLURRED [None]
  - VISUAL DISTURBANCE [None]
